FAERS Safety Report 18478881 (Version 2)
Quarter: 2021Q1

REPORT INFORMATION
  Report Type: Spontaneous
  Country: US (occurrence: US)
  Receive Date: 20201109
  Receipt Date: 20210118
  Transmission Date: 20210419
  Serious: Yes (Hospitalization, Other)
  Sender: FDA-Public Use
  Company Number: US-TEVA-2020-US-1847447

PATIENT
  Age: 55 Year
  Sex: Male

DRUGS (10)
  1. ASPIRIN 80 MG [Concomitant]
     Dosage: 1 DOSAGE FORMS DAILY;
     Dates: start: 2000
  2. IBUPROFEN 200MG [Concomitant]
     Active Substance: IBUPROFEN
     Indication: PAIN
     Dosage: 600MG PRN
     Route: 048
  3. VALSARTAN W/HYDROCHLOROTHIAZIDE MYLAN PHARMACEUTICALS [Suspect]
     Active Substance: HYDROCHLOROTHIAZIDE\VALSARTAN
     Indication: HYPERTENSION
     Dosage: 80/12.5MG
     Route: 048
     Dates: start: 20150405, end: 20190110
  4. VALSARTAN W/HYDROCHLOROTHIAZIDE ALEMBIC PHARMACEUTICALS [Suspect]
     Active Substance: HYDROCHLOROTHIAZIDE\VALSARTAN
     Indication: HYPERTENSION
     Dosage: 80/12.5MG
     Route: 048
  5. MULTIVITAMIN [Concomitant]
     Active Substance: VITAMINS
     Dosage: 1 DOSAGE FORMS DAILY;
     Dates: start: 2000
  6. FISH OIL [Concomitant]
     Active Substance: FISH OIL
     Dosage: 1 DOSAGE FORMS DAILY;
     Dates: start: 2000
  7. SIMVASTATIN. [Concomitant]
     Active Substance: SIMVASTATIN
     Indication: BLOOD CHOLESTEROL INCREASED
  8. LOMOTIL [Concomitant]
     Active Substance: ATROPINE SULFATE\DIPHENOXYLATE HYDROCHLORIDE
     Route: 048
  9. GLUCOSAMINE CHONDROITIN [Concomitant]
     Active Substance: CHONDROITIN SULFATE (BOVINE)\GLUCOSAMINE HYDROCHLORIDE
     Dosage: 1 DOSAGE FORMS DAILY;
     Dates: start: 2000
  10. VALSARTAN W/HYDROCHLOROTHIAZIDE AUROBINDO PHARMACEUTICALS [Suspect]
     Active Substance: HYDROCHLOROTHIAZIDE\VALSARTAN
     Indication: HYPERTENSION
     Dosage: 80/12.5MG
     Route: 048

REACTIONS (1)
  - Rectal cancer [Recovered/Resolved]
